FAERS Safety Report 24187188 (Version 2)
Quarter: 2024Q3

REPORT INFORMATION
  Report Type: Spontaneous
  Country: PL (occurrence: None)
  Receive Date: 20240808
  Receipt Date: 20240912
  Transmission Date: 20241017
  Serious: Yes (Hospitalization)
  Sender: ASTRAZENECA
  Company Number: 2024A179715

PATIENT
  Age: 23376 Day
  Sex: Male
  Weight: 126 kg

DRUGS (1)
  1. DAPAGLIFLOZIN [Suspect]
     Active Substance: DAPAGLIFLOZIN
     Dosage: UNKNOWN
     Route: 048

REACTIONS (4)
  - Benign prostatic hyperplasia [Unknown]
  - Urinary retention [Unknown]
  - Prostatic specific antigen increased [Unknown]
  - Neoplasm [Unknown]

NARRATIVE: CASE EVENT DATE: 20240523
